FAERS Safety Report 5109909-7 (Version None)
Quarter: 2006Q3

REPORT INFORMATION
  Report Type: 
  Country: None (occurrence: None)
  Receive Date: 20060921
  Receipt Date: 20060627
  Transmission Date: 20061208
  Serious: Yes (Life-Threatening, Hospitalization, Other)
  Sender: FDA-Public Use
  Company Number: US-BRISTOL-MYERS SQUIBB COMPANY-13424742

PATIENT
  Age: 69 Year
  Sex: Male

DRUGS (12)
  1. CISPLATIN [Suspect]
     Indication: NON-SMALL CELL LUNG CANCER
     Route: 041
     Dates: start: 20060613, end: 20060613
  2. TS-1 [Suspect]
     Indication: NON-SMALL CELL LUNG CANCER
     Route: 048
     Dates: start: 20060613
  3. CARDIZEM CD [Concomitant]
     Indication: HYPERTENSION
     Route: 048
     Dates: start: 20060101
  4. ADVAIR DISKUS 100/50 [Concomitant]
     Indication: CHRONIC OBSTRUCTIVE PULMONARY DISEASE
     Route: 048
     Dates: start: 20051213
  5. COMBIVENT [Concomitant]
     Indication: CHRONIC OBSTRUCTIVE PULMONARY DISEASE
     Route: 048
     Dates: start: 20051213
  6. MSIR [Concomitant]
     Indication: PAIN
     Route: 048
     Dates: start: 20060101
  7. MS CONTIN [Concomitant]
     Indication: PAIN
     Route: 048
     Dates: start: 20050101
  8. PREVACID [Concomitant]
     Indication: GASTROOESOPHAGEAL REFLUX DISEASE
     Route: 048
     Dates: start: 20060411
  9. RESTORIL [Concomitant]
     Indication: INSOMNIA
     Route: 048
     Dates: start: 20060411
  10. COUMADIN [Concomitant]
     Indication: ANTICOAGULANT THERAPY
     Route: 048
     Dates: start: 20060411
  11. CIPRO [Concomitant]
     Indication: INFECTION
     Dates: start: 20060606, end: 20060616
  12. FLAGYL [Concomitant]
     Indication: DIVERTICULITIS
     Dates: start: 20060606, end: 20060616

REACTIONS (8)
  - CONSTIPATION [None]
  - DIVERTICULAR PERFORATION [None]
  - DUODENAL ULCER PERFORATION [None]
  - DYSURIA [None]
  - HYPOTENSION [None]
  - INGUINAL HERNIA [None]
  - PITTING OEDEMA [None]
  - PYREXIA [None]
